FAERS Safety Report 5757913-8 (Version None)
Quarter: 2008Q2

REPORT INFORMATION
  Report Type: 
  Country: None (occurrence: None)
  Receive Date: 20080602
  Receipt Date: 20080602
  Transmission Date: 20081010
  Serious: Yes (Life-Threatening, Disabling)
  Sender: FDA-Public Use
  Company Number: None

PATIENT
  Age: 82 Year
  Sex: Male

DRUGS (14)
  1. LISINOPRIL AND HYDROCHLOROTHIAZIDE [Suspect]
     Indication: HYPERTENSION
     Dates: start: 20071015, end: 20080531
  2. LANTUS [Suspect]
     Indication: DIABETES MELLITUS
     Dates: start: 20071014, end: 20080531
  3. NORVASC [Suspect]
  4. CATAPRES [Suspect]
  5. LANTUS [Concomitant]
  6. REGULAR INSULIN [Concomitant]
  7. TYLENOL [Concomitant]
  8. NORVASC [Concomitant]
  9. ASPIRIN [Concomitant]
  10. CATAPRES [Concomitant]
  11. COLACE [Concomitant]
  12. CARDURA [Concomitant]
  13. LISINOPRIL AND HYDROCHLOROTHIAZIDE [Concomitant]
  14. MIRALAX [Concomitant]

REACTIONS (4)
  - CONFUSIONAL STATE [None]
  - DYSPHAGIA [None]
  - ELDER ABUSE [None]
  - ORAL INTAKE REDUCED [None]
